FAERS Safety Report 19963507 (Version 1)
Quarter: 2021Q4

REPORT INFORMATION
  Report Type: Spontaneous
  Country: US (occurrence: US)
  Receive Date: 20211017
  Receipt Date: 20211017
  Transmission Date: 20220303
  Serious: No
  Sender: FDA-Public Use
  Company Number: None

PATIENT
  Age: 46 Year
  Sex: Female
  Weight: 81 kg

DRUGS (7)
  1. NURTEC ODT [Suspect]
     Active Substance: RIMEGEPANT SULFATE
     Indication: Migraine
     Dosage: ?QUANTITY:8 TABLET(S);?OTHER FREQUENCY:EVERY 48 HOURS;
     Route: 060
     Dates: start: 20200701
  2. AIMOVIG [Concomitant]
     Active Substance: ERENUMAB-AOOE
  3. NERIVIO [Concomitant]
  4. GAMMACORE [Concomitant]
  5. XYZAL [Concomitant]
     Active Substance: LEVOCETIRIZINE DIHYDROCHLORIDE
  6. PREMARIN [Concomitant]
     Active Substance: ESTROGENS, CONJUGATED
  7. XIIDRA [Concomitant]
     Active Substance: LIFITEGRAST

REACTIONS (2)
  - Sinus pain [None]
  - Wrong schedule [None]

NARRATIVE: CASE EVENT DATE: 20211009
